FAERS Safety Report 5739309-8 (Version None)
Quarter: 2008Q2

REPORT INFORMATION
  Report Type: 
  Country: None (occurrence: None)
  Receive Date: 20080515
  Receipt Date: 20080515
  Transmission Date: 20081010
  Serious: Yes (Other)
  Sender: FDA-Public Use
  Company Number: None

PATIENT
  Sex: Male
  Weight: 117.9352 kg

DRUGS (1)
  1. HEPARIN [Suspect]
     Indication: THROMBOSIS PROPHYLAXIS
     Dosage: MULTIPLE INJECTIONS TO SKIN AROUND WRIST
     Dates: start: 20071101

REACTIONS (5)
  - CARDIOVASCULAR DISORDER [None]
  - GENERAL PHYSICAL CONDITION ABNORMAL [None]
  - IMPAIRED HEALING [None]
  - PREMATURE AGEING [None]
  - SKIN DEGENERATIVE DISORDER [None]
